FAERS Safety Report 16991925 (Version 1)
Quarter: 2019Q4

REPORT INFORMATION
  Report Type: Spontaneous
  Country: US (occurrence: US)
  Receive Date: 20190920
  Receipt Date: 20190920
  Transmission Date: 20200122
  Serious: Yes (Hospitalization)
  Sender: FDA-Public Use
  Company Number: None

PATIENT
  Age: 33 Year
  Sex: Female
  Weight: 19.5 kg

DRUGS (2)
  1. VX445/TEZ/IVA-100MG/150MG/75MG [Suspect]
     Active Substance: ELEXACAFTOR\IVACAFTOR\TEZACAFTOR
     Indication: CYSTIC FIBROSIS
     Dosage: ?          OTHER DOSE:100/50/75MG;?
     Route: 048
     Dates: start: 20190829
  2. VX IVACAFTOR 150MG [Suspect]
     Active Substance: IVACAFTOR
     Route: 048

REACTIONS (3)
  - Rhinovirus infection [None]
  - Oxygen saturation decreased [None]
  - Cough [None]

NARRATIVE: CASE EVENT DATE: 20190918
